FAERS Safety Report 6116094-1 (Version None)
Quarter: 2009Q1

REPORT INFORMATION
  Report Type: 
  Country: None (occurrence: None)
  Receive Date: 20090314
  Receipt Date: 20081230
  Transmission Date: 20090719
  Serious: No
  Sender: FDA-Public Use
  Company Number: US-ABBOTT-08P-163-0486645-00

PATIENT
  Sex: Male

DRUGS (4)
  1. HUMIRA [Suspect]
     Indication: PSORIASIS
     Route: 058
     Dates: start: 20081030
  2. HUMIRA [Suspect]
     Indication: PSORIATIC ARTHROPATHY
  3. LEVOTHYROXINE SODIUM [Concomitant]
     Indication: THYROID DISORDER
  4. ACTONEL [Concomitant]
     Indication: MINERAL SUPPLEMENTATION

REACTIONS (3)
  - INCORRECT DOSE ADMINISTERED [None]
  - INJECTION SITE HAEMATOMA [None]
  - INJECTION SITE IRRITATION [None]
